FAERS Safety Report 4854379-7 (Version None)
Quarter: 2005Q4

REPORT INFORMATION
  Report Type: 
  Country: None (occurrence: None)
  Receive Date: 20051213
  Receipt Date: 20051213
  Transmission Date: 20060501
  Serious: Yes (Hospitalization)
  Sender: FDA-Public Use
  Company Number: None

PATIENT
  Age: 54 Year
  Sex: Male
  Weight: 72.6 kg

DRUGS (8)
  1. ATENOLOL [Suspect]
     Dosage: 50 MG QD BY MOUTH
     Route: 048
     Dates: start: 20050303, end: 20050823
  2. CALCITRIOL [Concomitant]
  3. SIMVASTATIN [Concomitant]
  4. VITAMIN D [Concomitant]
  5. NOVOLOG [Concomitant]
  6. PREDNISONE TAB [Concomitant]
  7. ALENDRONATE NA [Concomitant]
  8. CALCIUM CARBONATE [Concomitant]

REACTIONS (1)
  - BRADYCARDIA [None]
